FAERS Safety Report 16099700 (Version 1)
Quarter: 2019Q1

REPORT INFORMATION
  Report Type: Spontaneous
  Country: US (occurrence: US)
  Receive Date: 20190321
  Receipt Date: 20190321
  Transmission Date: 20190418
  Serious: No
  Sender: FDA-Public Use
  Company Number: US-009507513-1903USA004081

PATIENT
  Age: 77 Year
  Sex: Female

DRUGS (2)
  1. SINGULAIR [Suspect]
     Active Substance: MONTELUKAST SODIUM
     Dosage: UNK
     Route: 048
  2. CLONIDINE. [Suspect]
     Active Substance: CLONIDINE
     Dosage: UNK
     Route: 048

REACTIONS (6)
  - Flushing [Unknown]
  - Intentional underdose [Unknown]
  - Abdominal pain upper [Unknown]
  - Feeling hot [Unknown]
  - Hot flush [Unknown]
  - Wrong technique in product usage process [Unknown]
